FAERS Safety Report 17183614 (Version 1)
Quarter: 2019Q4

REPORT INFORMATION
  Report Type: Spontaneous
  Country: CA (occurrence: CA)
  Receive Date: 20191220
  Receipt Date: 20191220
  Transmission Date: 20200122
  Serious: Yes (Death)
  Sender: FDA-Public Use
  Company Number: CA-PFIZER INC-2019550317

PATIENT
  Age: 77 Year
  Sex: Female

DRUGS (1)
  1. PHENYTOIN. [Suspect]
     Active Substance: PHENYTOIN
     Dosage: 1 G, UNK
     Route: 042

REACTIONS (3)
  - Nausea [Fatal]
  - Dyspnoea [Fatal]
  - Oxygen saturation decreased [Fatal]
